FAERS Safety Report 4691937-7 (Version None)
Quarter: 2005Q2

REPORT INFORMATION
  Report Type: 
  Country: None (occurrence: None)
  Receive Date: 20050614
  Receipt Date: 20050601
  Transmission Date: 20051028
  Serious: Yes (Other)
  Sender: FDA-Public Use
  Company Number: HQWYE304107JUN05

PATIENT
  Age: 56 Year
  Sex: Female
  Weight: 68.1 kg

DRUGS (2)
  1. EFFEXOR XR [Suspect]
     Indication: GENERALISED ANXIETY DISORDER
     Dosage: 112.5 MG 1X PER 1 DAY, ORAL
     Route: 048
     Dates: start: 20050201
  2. FOSAMAX [Concomitant]

REACTIONS (1)
  - MACULAR OEDEMA [None]
